FAERS Safety Report 7005782-0 (Version None)
Quarter: 2010Q3

REPORT INFORMATION
  Report Type: 
  Country: None (occurrence: None)
  Receive Date: 20100921
  Receipt Date: 20100908
  Transmission Date: 20110219
  Serious: Yes (Hospitalization, Disabling, Other)
  Sender: FDA-Public Use
  Company Number: PHHY2010US57528

PATIENT
  Sex: Male
  Weight: 61.3 kg

DRUGS (7)
  1. GLEEVEC [Suspect]
     Indication: CHRONIC MYELOID LEUKAEMIA
     Dosage: 400 MG, QD
     Route: 048
     Dates: start: 20080724, end: 20100702
  2. SANCUSO PATCH [Concomitant]
     Indication: NAUSEA
     Dosage: UNK
     Route: 061
  3. COMPAZINE [Concomitant]
     Indication: NAUSEA
     Dosage: UNK
     Route: 048
  4. COMPAZINE [Concomitant]
     Dosage: 10 MG, TID
     Route: 042
  5. KYTRIL [Concomitant]
     Indication: NAUSEA
     Dosage: UNK
     Route: 048
  6. KYTRIL [Concomitant]
     Dosage: 1 MG, BID
     Route: 042
  7. OMEPRAZOLE [Concomitant]
     Dosage: 20 MG, BID
     Route: 048

REACTIONS (8)
  - DEHYDRATION [None]
  - HYPOALBUMINAEMIA [None]
  - HYPOMAGNESAEMIA [None]
  - MALNUTRITION [None]
  - NAUSEA [None]
  - RENAL FAILURE [None]
  - VOMITING [None]
  - WEIGHT DECREASED [None]
